FAERS Safety Report 6439336-1 (Version None)
Quarter: 2009Q4

REPORT INFORMATION
  Report Type: 
  Country: None (occurrence: None)
  Receive Date: 20091113
  Receipt Date: 20091104
  Transmission Date: 20100525
  Serious: Yes (Hospitalization)
  Sender: FDA-Public Use
  Company Number: US-ASTRAZENECA-2009SE24679

PATIENT
  Age: 39 Year
  Sex: Male
  Weight: 124.3 kg

DRUGS (4)
  1. SEROQUEL [Suspect]
     Route: 048
     Dates: start: 20010101
  2. SEROQUEL [Suspect]
     Route: 048
  3. SEROQUEL [Suspect]
     Route: 048
     Dates: start: 20080101
  4. SEROQUEL [Suspect]
     Route: 048
     Dates: end: 20090929

REACTIONS (15)
  - CONFUSIONAL STATE [None]
  - DECREASED APPETITE [None]
  - DIABETES MELLITUS [None]
  - DISSOCIATION [None]
  - EATING DISORDER SYMPTOM [None]
  - HALLUCINATION [None]
  - HOSPITALISATION [None]
  - HYPERHIDROSIS [None]
  - HYPERTENSION [None]
  - HYPERTRIGLYCERIDAEMIA [None]
  - ILLUSION [None]
  - INSOMNIA [None]
  - SLEEP DISORDER [None]
  - THINKING ABNORMAL [None]
  - WEIGHT INCREASED [None]
